FAERS Safety Report 8691550 (Version 6)
Quarter: 2012Q4

REPORT INFORMATION
  Report Type: 
  Country: US (occurrence: US)
  Receive Date: 20120730
  Receipt Date: 20121214
  Transmission Date: 20130627
  Serious: Yes (Hospitalization, Other)
  Sender: FDA-Public Use
  Company Number: US-PFIZER INC-2012180481

PATIENT
  Sex: Female

DRUGS (1)
  1. LYRICA [Suspect]
     Indication: FIBROMYALGIA
     Dosage: UNK
     Route: 048
     Dates: start: 20110901

REACTIONS (9)
  - Malabsorption [Unknown]
  - Nerve injury [Unknown]
  - Osteomyelitis [Unknown]
  - Sciatic nerve neuropathy [Unknown]
  - Rash [Unknown]
  - Pain [Unknown]
  - Insomnia [Unknown]
  - Crying [Unknown]
  - Therapeutic response unexpected [Unknown]
